FAERS Safety Report 13268783 (Version 1)
Quarter: 2017Q1

REPORT INFORMATION
  Report Type: Spontaneous
  Country: JP (occurrence: JP)
  Receive Date: 20170224
  Receipt Date: 20170224
  Transmission Date: 20170428
  Serious: Yes (Hospitalization)
  Sender: FDA-Public Use
  Company Number: JP-ELI_LILLY_AND_COMPANY-JP201702006851

PATIENT
  Age: 60 Year
  Sex: Male

DRUGS (4)
  1. LEVOFOLINATE CALCIUM [Suspect]
     Active Substance: LEVOLEUCOVORIN CALCIUM
     Indication: COLON CANCER
     Dosage: UNK
     Route: 065
     Dates: start: 20161202
  2. CYRAMZA [Suspect]
     Active Substance: RAMUCIRUMAB
     Indication: COLON CANCER
     Dosage: 8 MG/KG, UNK
     Route: 042
     Dates: start: 20161202
  3. 5-FU                               /00098801/ [Suspect]
     Active Substance: FLUOROURACIL
     Indication: COLON CANCER
     Dosage: UNK
     Route: 065
     Dates: start: 20161202
  4. IRINOTECAN [Suspect]
     Active Substance: IRINOTECAN
     Indication: COLON CANCER
     Dosage: UNK
     Route: 065
     Dates: start: 20161202

REACTIONS (3)
  - Peritonitis [Recovering/Resolving]
  - Abdominal pain [Recovered/Resolved]
  - Enterocolitis [Recovering/Resolving]

NARRATIVE: CASE EVENT DATE: 20161202
